FAERS Safety Report 6672283-9 (Version None)
Quarter: 2010Q2

REPORT INFORMATION
  Report Type: 
  Country: None (occurrence: None)
  Receive Date: 20100408
  Receipt Date: 20100330
  Transmission Date: 20101027
  Serious: No
  Sender: FDA-Public Use
  Company Number: US-BIOGENIDEC-2010BI011227

PATIENT
  Age: 45 Year
  Sex: Female

DRUGS (1)
  1. TYSABRI [Suspect]
     Indication: MULTIPLE SCLEROSIS
     Route: 042
     Dates: start: 20091201

REACTIONS (10)
  - BLADDER SPASM [None]
  - COUGH [None]
  - DIPLOPIA [None]
  - FATIGUE [None]
  - MICTURITION URGENCY [None]
  - MIDDLE EAR EFFUSION [None]
  - NASOPHARYNGITIS [None]
  - SINUS CONGESTION [None]
  - SINUS HEADACHE [None]
  - SINUSITIS [None]
